FAERS Safety Report 8223260-8 (Version None)
Quarter: 2012Q1

REPORT INFORMATION
  Report Type: 
  Country: None (occurrence: None)
  Receive Date: 20120321
  Receipt Date: 20120315
  Transmission Date: 20120608
  Serious: Yes (Life-Threatening)
  Sender: FDA-Public Use
  Company Number: SE-ROCHE-1042600

PATIENT
  Age: 34 Year
  Sex: Male

DRUGS (2)
  1. AVASTIN [Suspect]
     Indication: PRODUCT USED FOR UNKNOWN INDICATION
     Dosage: DOSING REGIMEN: 1 1
     Route: 042
     Dates: start: 20120130
  2. IRINOTECAN HCL [Concomitant]
     Dosage: REPORTED AS IRINOTECAN ACCORD
     Dates: start: 20120109, end: 20120130

REACTIONS (1)
  - RENAL IMPAIRMENT [None]
